FAERS Safety Report 6245957-1 (Version None)
Quarter: 2009Q2

REPORT INFORMATION
  Report Type: 
  Country: None (occurrence: None)
  Receive Date: 20090626
  Receipt Date: 20080825
  Transmission Date: 20091009
  Serious: No
  Sender: FDA-Public Use
  Company Number: A0744443A

PATIENT
  Age: 57 Year
  Sex: Female

DRUGS (5)
  1. IMITREX [Suspect]
     Indication: MIGRAINE
     Dosage: 100MG SINGLE DOSE
     Route: 048
     Dates: start: 20070101
  2. IMITREX [Suspect]
     Route: 058
  3. METOPROLOL SUCCINATE [Concomitant]
  4. MIRTAZAPINE [Concomitant]
  5. FIORICET [Concomitant]

REACTIONS (5)
  - ABDOMINAL DISCOMFORT [None]
  - DYSPHAGIA [None]
  - FATIGUE [None]
  - FEELING ABNORMAL [None]
  - SENSATION OF FOREIGN BODY [None]
